FAERS Safety Report 16940714 (Version 1)
Quarter: 2019Q4

REPORT INFORMATION
  Report Type: Spontaneous
  Country: US (occurrence: US)
  Receive Date: 20191021
  Receipt Date: 20191021
  Transmission Date: 20200122
  Serious: Yes (Other)
  Sender: FDA-Public Use
  Company Number: US-PFIZER INC-2019454234

PATIENT
  Age: 62 Year
  Sex: Male

DRUGS (3)
  1. VIAGRA [Suspect]
     Active Substance: SILDENAFIL CITRATE
     Indication: ERECTILE DYSFUNCTION
     Dosage: 50 MG, 2-3 TIMES PER WEEK
     Dates: start: 20070724, end: 2009
  2. LEVITRA [Suspect]
     Active Substance: VARDENAFIL HYDROCHLORIDE
     Indication: ERECTILE DYSFUNCTION
     Dosage: 2-3 TIMES PER WEEK
  3. CIALIS [Suspect]
     Active Substance: TADALAFIL
     Indication: ERECTILE DYSFUNCTION
     Dosage: 5 MG, 2-3 TIMES PER WEEK
     Dates: start: 20130513, end: 20140711

REACTIONS (2)
  - Malignant melanoma [Unknown]
  - Anxiety [Unknown]

NARRATIVE: CASE EVENT DATE: 201506
